FAERS Safety Report 4518323-4 (Version None)
Quarter: 2004Q4

REPORT INFORMATION
  Report Type: 
  Country: None (occurrence: None)
  Receive Date: 20041202
  Receipt Date: 20041118
  Transmission Date: 20050328
  Serious: Yes (Disabling, Other)
  Sender: FDA-Public Use
  Company Number: 2004S1000222

PATIENT
  Age: 17 Year
  Sex: Male

DRUGS (5)
  1. CUBICIN [Suspect]
     Indication: OSTEOMYELITIS
     Dosage: 6 MG/KG; Q24H; IV
     Route: 042
     Dates: start: 20040901, end: 20040920
  2. CUBICIN [Suspect]
     Indication: STAPHYLOCOCCAL INFECTION
     Dosage: 6 MG/KG; Q24H; IV
     Route: 042
     Dates: start: 20040901, end: 20040920
  3. VANCOMYCIN [Concomitant]
  4. RIFAMPICIN [Concomitant]
  5. DIFLUCAN [Concomitant]

REACTIONS (13)
  - BLINDNESS UNILATERAL [None]
  - DIZZINESS [None]
  - ENDOPHTHALMITIS [None]
  - EYE INFECTION FUNGAL [None]
  - GASTRITIS [None]
  - LIVER FUNCTION TEST ABNORMAL [None]
  - MACULAR DEGENERATION [None]
  - MACULOPATHY [None]
  - ORAL CANDIDIASIS [None]
  - PUPILLARY REFLEX IMPAIRED [None]
  - RASH [None]
  - STAPHYLOCOCCAL INFECTION [None]
  - VISION BLURRED [None]
